FAERS Safety Report 7703938-2 (Version None)
Quarter: 2011Q3

REPORT INFORMATION
  Report Type: 
  Country: None (occurrence: None)
  Receive Date: 20110823
  Receipt Date: 20110809
  Transmission Date: 20111222
  Serious: Yes (Other)
  Sender: FDA-Public Use
  Company Number: US-ASTRAZENECA-2011SE48115

PATIENT
  Age: 53 Year
  Sex: Female

DRUGS (2)
  1. SYMBICORT [Concomitant]
     Route: 055
  2. NEXIUM [Suspect]
     Route: 048

REACTIONS (4)
  - HAEMOPTYSIS [None]
  - GASTROOESOPHAGEAL REFLUX DISEASE [None]
  - SLEEP DISORDER DUE TO A GENERAL MEDICAL CONDITION [None]
  - DRUG DOSE OMISSION [None]
